FAERS Safety Report 10236135 (Version 2)
Quarter: 2015Q2

REPORT INFORMATION
  Report Type: Report from Study
  Country: CA (occurrence: CA)
  Receive Date: 20140613
  Receipt Date: 20150624
  Transmission Date: 20150821
  Serious: Yes (Other)
  Sender: FDA-Public Use
  Company Number: CA-JNJFOC-20140605084

PATIENT
  Age: 29 Year
  Sex: Male
  Weight: 85.2 kg

DRUGS (3)
  1. REMICADE [Suspect]
     Active Substance: INFLIXIMAB
     Indication: CROHN^S DISEASE
     Route: 042
     Dates: start: 20121105
  2. REMICADE [Suspect]
     Active Substance: INFLIXIMAB
     Indication: CROHN^S DISEASE
     Dosage: RESCUE DOSE, WEEK 0, 2, 6, THEN Q 8 WEEK
     Route: 042
     Dates: start: 20140606
  3. PERCOCET [Concomitant]
     Active Substance: ACETAMINOPHEN\OXYCODONE HYDROCHLORIDE
     Dosage: AS NECESSARY (PRN)
     Route: 065

REACTIONS (2)
  - Malaise [Unknown]
  - Calculus urinary [Unknown]

NARRATIVE: CASE EVENT DATE: 201405
